FAERS Safety Report 9075193 (Version 1)
Quarter: 2013Q1

REPORT INFORMATION
  Report Type: Spontaneous
  Country: GB (occurrence: GB)
  Receive Date: 20130129
  Receipt Date: 20130129
  Transmission Date: 20140127
  Serious: Yes (Other)
  Sender: FDA-Public Use
  Company Number: GB-AMGEN-GBRSP2011012299

PATIENT
  Sex: Male

DRUGS (1)
  1. NEUPOGEN [Suspect]
     Indication: PRODUCT USED FOR UNKNOWN INDICATION
     Dosage: UNK UNK, 2 TIMES/WK

REACTIONS (11)
  - Neutropenia [Unknown]
  - Tremor [Unknown]
  - Feeling cold [Unknown]
  - Autoimmune neutropenia [Unknown]
  - Thrombocytopenia [Unknown]
  - Musculoskeletal pain [Unknown]
  - Influenza like illness [Unknown]
  - Chills [Unknown]
  - Unevaluable event [Unknown]
  - Asthenia [Unknown]
  - Bone pain [Unknown]
